FAERS Safety Report 9989209 (Version 1)
Quarter: 2014Q1

REPORT INFORMATION
  Report Type: Spontaneous
  Country: IT (occurrence: IT)
  Receive Date: 20140310
  Receipt Date: 20140310
  Transmission Date: 20141002
  Serious: Yes (Other)
  Sender: FDA-Public Use
  Company Number: IT-TEVA-466313ISR

PATIENT
  Age: 47 Year
  Sex: Male
  Weight: 64 kg

DRUGS (3)
  1. FLUOROURACILE TEVA [Suspect]
     Indication: ADENOCARCINOMA OF COLON
     Dosage: 1200 MG/M2 DAILY; CONCENTRATE FOR SOLUTION FOR INTRAVENOUS INFUSION
     Route: 042
     Dates: start: 20131202, end: 20131217
  2. OXALIPLATINO OCTAVIS ITALY [Concomitant]
     Indication: ADENOCARCINOMA OF COLON
     Dosage: 85 MG/M2 DAILY; CONCENTRATE FOR SOLUTION FOR INTRAVENOUS INFUSION
     Route: 042
     Dates: start: 20131202, end: 20131216
  3. CALCIO LEVOFOLINATO TEVA [Concomitant]
     Indication: ADENOCARCINOMA OF COLON
     Dosage: 100 MG/KG DAILY; POWDER FOR SOLUTION FOR INTRAVENOUS INFUSION
     Route: 042
     Dates: start: 20131202, end: 20131217

REACTIONS (6)
  - Vomiting [Recovered/Resolved]
  - Stomatitis [Recovered/Resolved]
  - Pyrexia [Recovered/Resolved]
  - Neutropenia [Recovered/Resolved]
  - Palmar-plantar erythrodysaesthesia syndrome [Recovered/Resolved]
  - Asthenia [Recovered/Resolved]
